FAERS Safety Report 9421454 (Version 1)
Quarter: 2013Q3

REPORT INFORMATION
  Report Type: Spontaneous
  Country: RO (occurrence: RO)
  Receive Date: 20130726
  Receipt Date: 20130726
  Transmission Date: 20140515
  Serious: Yes (Hospitalization, Other)
  Sender: FDA-Public Use
  Company Number: RO-AMGEN-ROUSP2013051964

PATIENT
  Age: 66 Year
  Sex: Female
  Weight: 43 kg

DRUGS (8)
  1. NEULASTA [Suspect]
     Indication: NON-HODGKIN^S LYMPHOMA
     Dosage: UNK
     Route: 065
     Dates: start: 20130710
  2. ENDOXAN                            /00021101/ [Concomitant]
     Indication: NON-HODGKIN^S LYMPHOMA
     Dosage: 1000 MUG, UNK
     Dates: start: 20130710
  3. DOXORUBICIN [Concomitant]
     Indication: NON-HODGKIN^S LYMPHOMA
     Dosage: 50 MUG, UNK
  4. DEXAMETHASONE [Concomitant]
     Indication: NON-HODGKIN^S LYMPHOMA
     Dosage: 2 VIALS
  5. ZARZIO [Concomitant]
     Indication: NON-HODGKIN^S LYMPHOMA
     Dosage: UNK
     Dates: start: 20130708
  6. RITUXIMAB [Concomitant]
     Indication: NON-HODGKIN^S LYMPHOMA
     Dosage: UNK
  7. VINCRISTINE [Concomitant]
     Indication: NON-HODGKIN^S LYMPHOMA
     Dosage: UNK
  8. PREDNISOLONE [Concomitant]
     Indication: NON-HODGKIN^S LYMPHOMA
     Dosage: UNK

REACTIONS (3)
  - Neutrophil count decreased [Recovering/Resolving]
  - Bone marrow failure [Unknown]
  - Drug ineffective [Recovering/Resolving]
